FAERS Safety Report 5472398-7 (Version None)
Quarter: 2007Q3

REPORT INFORMATION
  Report Type: 
  Country: None (occurrence: None)
  Receive Date: 20070926
  Receipt Date: 20070913
  Transmission Date: 20080115
  Serious: Yes (Hospitalization)
  Sender: FDA-Public Use
  Company Number: 02100-JPN-07-0551

PATIENT
  Age: 73 Year
  Sex: Female

DRUGS (6)
  1. CILOSTAZOL [Suspect]
     Indication: CEREBRAL INFARCTION
     Dosage: ONE OF 200 MG ORAL
     Route: 048
     Dates: start: 20051011, end: 20060507
  2. CLOPIDOGREL [Suspect]
     Dosage: 75 MG
  3. DOXAZOSIN MESYLATE [Concomitant]
  4. ATORVASTATIN CALCIUM [Concomitant]
  5. HUMAN INSULIN [Concomitant]
  6. TORSEMIDE [Concomitant]

REACTIONS (4)
  - HAEMOGLOBIN DECREASED [None]
  - HYPOAESTHESIA ORAL [None]
  - ULCER HAEMORRHAGE [None]
  - UPPER GASTROINTESTINAL HAEMORRHAGE [None]
